FAERS Safety Report 20036902 (Version 1)
Quarter: 2021Q4

REPORT INFORMATION
  Report Type: Spontaneous
  Country: US (occurrence: US)
  Receive Date: 20211105
  Receipt Date: 20211105
  Transmission Date: 20220303
  Serious: Yes (Other)
  Sender: FDA-Public Use
  Company Number: US-GLAXOSMITHKLINE-US2021GSK228404

PATIENT
  Sex: Male

DRUGS (4)
  1. ZANTAC [Suspect]
     Active Substance: RANITIDINE HYDROCHLORIDE
     Indication: Gastritis
     Dosage: 150 MG, QD
     Route: 065
     Dates: start: 1991, end: 1997
  2. ZANTAC [Suspect]
     Active Substance: RANITIDINE HYDROCHLORIDE
     Indication: Gastritis
     Dosage: 150 MG, QD
     Route: 065
     Dates: start: 1991, end: 1997
  3. RANITIDINE [Suspect]
     Active Substance: RANITIDINE
     Indication: Gastritis
     Dosage: 150 MG, QD
     Route: 065
     Dates: start: 1997, end: 2020
  4. RANITIDINE [Suspect]
     Active Substance: RANITIDINE
     Indication: Gastritis
     Dosage: 150 MG, QD
     Route: 065
     Dates: start: 1997, end: 2020

REACTIONS (1)
  - Prostate cancer [Unknown]
